FAERS Safety Report 21443506 (Version 3)
Quarter: 2022Q4

REPORT INFORMATION
  Report Type: Report from Study
  Country: US (occurrence: US)
  Receive Date: 20221012
  Receipt Date: 20221212
  Transmission Date: 20230112
  Serious: No
  Sender: FDA-Public Use
  Company Number: US-NOVARTISTESTPH-NVSC2022US229494

PATIENT
  Sex: Male

DRUGS (3)
  1. COSENTYX [Suspect]
     Active Substance: SECUKINUMAB
     Indication: Psoriatic arthropathy
     Dosage: 150 MG, OTHER, (WEEK 0, 1, 2, 3, 4 THEN EVERY 4 WEEKS)
     Route: 058
  2. COSENTYX [Suspect]
     Active Substance: SECUKINUMAB
     Dosage: 300 MG, OTHER, (WEEK 0, 1, 2, 3, 4 THEN EVERY 4 WEEKS)
     Route: 058
  3. COSENTYX [Suspect]
     Active Substance: SECUKINUMAB
     Dosage: 300 MG, QMO (THEN EVERY 4 WEEKS)
     Route: 058

REACTIONS (3)
  - Pigmentation disorder [Recovering/Resolving]
  - Scar [Recovering/Resolving]
  - Therapeutic product effect incomplete [Unknown]
